FAERS Safety Report 21651620 (Version 2)
Quarter: 2022Q4

REPORT INFORMATION
  Report Type: Report from Study
  Country: BR (occurrence: BR)
  Receive Date: 20221128
  Receipt Date: 20221202
  Transmission Date: 20230113
  Serious: Yes (Other)
  Sender: FDA-Public Use
  Company Number: BR-JNJFOC-20221120035

PATIENT
  Age: 44 Year
  Sex: Female
  Weight: 74 kg

DRUGS (4)
  1. SIMPONI [Suspect]
     Active Substance: GOLIMUMAB
     Indication: Ankylosing spondylitis
     Route: 058
     Dates: start: 20220831
  2. SIMPONI [Suspect]
     Active Substance: GOLIMUMAB
     Route: 058
     Dates: start: 20220903, end: 20221001
  3. SIMPONI [Suspect]
     Active Substance: GOLIMUMAB
     Route: 058
     Dates: start: 20221001, end: 20221005
  4. NIMESULIDE [Concomitant]
     Active Substance: NIMESULIDE
     Indication: Ankylosing spondylitis
     Route: 048
     Dates: start: 202206

REACTIONS (12)
  - Dermatitis bullous [Unknown]
  - Pruritus [Unknown]
  - Wound [Unknown]
  - Pain [Unknown]
  - Blood pressure fluctuation [Unknown]
  - Epistaxis [Unknown]
  - Pyrexia [Unknown]
  - Sinusitis [Unknown]
  - Blister [Unknown]
  - Dizziness [Unknown]
  - Urticaria [Unknown]
  - Off label use [Unknown]

NARRATIVE: CASE EVENT DATE: 20220831
